FAERS Safety Report 7224631-9 (Version None)
Quarter: 2011Q1

REPORT INFORMATION
  Report Type: 
  Country: None (occurrence: None)
  Receive Date: 20110103
  Receipt Date: 20101217
  Transmission Date: 20110831
  Serious: Yes (Death)
  Sender: FDA-Public Use
  Company Number: 2010005494

PATIENT
  Age: 63 Year
  Sex: Male

DRUGS (2)
  1. TARCEVA [Suspect]
     Indication: LUNG NEOPLASM MALIGNANT
     Dosage: (150 MG, ORAL) (100 MG, ORAL)
     Route: 048
     Dates: start: 20081119, end: 20100701
  2. TARCEVA [Suspect]
     Indication: LUNG NEOPLASM MALIGNANT
     Dosage: (150 MG, ORAL) (100 MG, ORAL)
     Route: 048
     Dates: start: 20081101

REACTIONS (1)
  - DEATH [None]
